FAERS Safety Report 6754267-5 (Version None)
Quarter: 2010Q2

REPORT INFORMATION
  Report Type: 
  Country: None (occurrence: None)
  Receive Date: 20100603
  Receipt Date: 20100528
  Transmission Date: 20101027
  Serious: Yes (Hospitalization)
  Sender: FDA-Public Use
  Company Number: FR-MERCK-1005FRA00108

PATIENT
  Age: 72 Year
  Sex: Male

DRUGS (5)
  1. PRIMAXIN [Suspect]
     Indication: LUNG DISORDER
     Route: 042
     Dates: start: 20100406
  2. AMIKACIN SULFATE [Suspect]
     Indication: LUNG DISORDER
     Route: 042
     Dates: start: 20100406
  3. AZACITIDINE [Suspect]
     Indication: LUNG DISORDER
     Route: 058
     Dates: start: 20100322, end: 20100330
  4. CIPROFLOXACIN HYDROCHLORIDE [Suspect]
     Indication: LUNG DISORDER
     Route: 065
     Dates: start: 20100403, end: 20100405
  5. CEFTRIAXONE SODIUM [Suspect]
     Indication: LUNG DISORDER
     Route: 065
     Dates: start: 20100403, end: 20100405

REACTIONS (1)
  - PANCREATITIS ACUTE [None]
